FAERS Safety Report 10773037 (Version 1)
Quarter: 2015Q1

REPORT INFORMATION
  Report Type: Spontaneous
  Country: US (occurrence: US)
  Receive Date: 20150207
  Receipt Date: 20150207
  Transmission Date: 20150721
  Serious: Yes (Other)
  Sender: FDA-Public Use
  Company Number: US-BIOGEN USA-2014BI133795

PATIENT
  Sex: Male

DRUGS (2)
  1. TYSABRI [Suspect]
     Active Substance: NATALIZUMAB
     Indication: MULTIPLE SCLEROSIS
     Route: 042
     Dates: start: 20070425, end: 20121214
  2. TYSABRI [Suspect]
     Active Substance: NATALIZUMAB
     Route: 042
     Dates: start: 20140825

REACTIONS (5)
  - Balance disorder [Unknown]
  - Nuclear magnetic resonance imaging abnormal [None]
  - Clumsiness [None]
  - Muscular weakness [Unknown]
  - Multiple sclerosis relapse [None]
